FAERS Safety Report 21499046 (Version 1)
Quarter: 2022Q4

REPORT INFORMATION
  Report Type: Spontaneous
  Country: US (occurrence: None)
  Receive Date: 20221022
  Receipt Date: 20221022
  Transmission Date: 20230112
  Serious: Yes (Disabling, Other)
  Sender: FDA-Public Use
  Company Number: None

PATIENT
  Age: 41 Year
  Sex: Female
  Weight: 69.75 kg

DRUGS (3)
  1. LUVOX [Suspect]
     Active Substance: FLUVOXAMINE MALEATE
     Dates: start: 20141001
  2. Fluvoxomine [Concomitant]
  3. GUANFACINE [Concomitant]
     Active Substance: GUANFACINE

REACTIONS (6)
  - Anxiety [None]
  - Withdrawal syndrome [None]
  - Influenza [None]
  - Vomiting [None]
  - Confusional state [None]
  - Mental disorder [None]

NARRATIVE: CASE EVENT DATE: 20210704
